FAERS Safety Report 5460528-2 (Version None)
Quarter: 2007Q3

REPORT INFORMATION
  Report Type: 
  Country: None (occurrence: None)
  Receive Date: 20070919
  Receipt Date: 20070907
  Transmission Date: 20080115
  Serious: Yes (Other)
  Sender: FDA-Public Use
  Company Number: US-PFIZER INC-2007076019

PATIENT
  Sex: Female
  Weight: 68.181 kg

DRUGS (7)
  1. CHANTIX [Suspect]
     Indication: SMOKING CESSATION THERAPY
     Route: 048
  2. SYNTHROID [Concomitant]
     Indication: THYROID DISORDER
  3. ACIPHEX [Concomitant]
     Indication: GASTROOESOPHAGEAL REFLUX DISEASE
  4. NASONEX [Concomitant]
  5. ASTELIN [Concomitant]
  6. COSOPT [Concomitant]
  7. TOBRAMYCIN [Concomitant]

REACTIONS (4)
  - ABNORMAL DREAMS [None]
  - DRUG WITHDRAWAL SYNDROME [None]
  - EYE MUSCLE OPERATION [None]
  - NAUSEA [None]
